FAERS Safety Report 12422485 (Version 1)
Quarter: 2016Q2

REPORT INFORMATION
  Report Type: Spontaneous
  Country: US (occurrence: US)
  Receive Date: 20160601
  Receipt Date: 20160601
  Transmission Date: 20160815
  Serious: No
  Sender: FDA-Public Use
  Company Number: US-BIOGEN-2016BI00236324

PATIENT
  Sex: Female

DRUGS (1)
  1. PLEGRIDY [Suspect]
     Active Substance: PEGINTERFERON BETA-1A
     Indication: MULTIPLE SCLEROSIS
     Route: 065
     Dates: start: 20150817, end: 20160222

REACTIONS (5)
  - Drug intolerance [Unknown]
  - Influenza like illness [Unknown]
  - Injection site reaction [Unknown]
  - Dysphagia [Unknown]
  - Fatigue [Unknown]
